FAERS Safety Report 5910480-8 (Version None)
Quarter: 2008Q4

REPORT INFORMATION
  Report Type: 
  Country: None (occurrence: None)
  Receive Date: 20081007
  Receipt Date: 20080930
  Transmission Date: 20090506
  Serious: Yes (Other)
  Sender: FDA-Public Use
  Company Number: US-ASTRAZENECA-2008UW21110

PATIENT
  Age: 39 Year
  Sex: Female
  Weight: 48.5 kg

DRUGS (5)
  1. PRILOSEC OTC [Suspect]
     Indication: GASTRITIS
     Route: 048
     Dates: start: 20080912, end: 20080921
  2. NEXIUM [Suspect]
     Route: 048
     Dates: end: 20080911
  3. VITAMIN TAB [Concomitant]
  4. LEXAPRO [Concomitant]
  5. LORAZEPAM [Concomitant]

REACTIONS (10)
  - ANXIETY [None]
  - DISORIENTATION [None]
  - HOT FLUSH [None]
  - INSOMNIA [None]
  - NAUSEA [None]
  - PANIC DISORDER [None]
  - PARAESTHESIA [None]
  - PRESYNCOPE [None]
  - THERAPY CESSATION [None]
  - TREMOR [None]
